FAERS Safety Report 5166996-8 (Version None)
Quarter: 2006Q4

REPORT INFORMATION
  Report Type: 
  Country: None (occurrence: None)
  Receive Date: 20061129
  Receipt Date: 20061116
  Transmission Date: 20070319
  Serious: Yes (Other)
  Sender: FDA-Public Use
  Company Number: 2006142252

PATIENT
  Age: 80 Year
  Sex: Male

DRUGS (1)
  1. CELEBREX [Suspect]
     Dosage: 200 MG, ORAL
     Route: 048

REACTIONS (3)
  - ERYTHEMA [None]
  - LOSS OF CONSCIOUSNESS [None]
  - SHOCK [None]
